FAERS Safety Report 14173760 (Version 1)
Quarter: 2017Q4

REPORT INFORMATION
  Report Type: Report from Study
  Country: MX (occurrence: MX)
  Receive Date: 20171109
  Receipt Date: 20171109
  Transmission Date: 20180321
  Serious: Yes (Other)
  Sender: FDA-Public Use
  Company Number: PHHY2017MX154347

PATIENT
  Sex: Female

DRUGS (4)
  1. EMPAGLIFLOZIN [Concomitant]
     Active Substance: EMPAGLIFLOZIN
     Indication: PRODUCT USED FOR UNKNOWN INDICATION
     Route: 065
  2. CO-DIOVAN [Suspect]
     Active Substance: HYDROCHLOROTHIAZIDE\VALSARTAN
     Indication: HYPERTENSION
     Dosage: 1 DF (HYDROCHLOROTHIAZIDE 12.5 MG AND VALSARTAN 160), QD (IN THE MORNING)
     Route: 048
     Dates: start: 2000
  3. METFORMIN [Suspect]
     Active Substance: METFORMIN HYDROCHLORIDE
     Indication: DIABETES MELLITUS
     Dosage: 850 MG, Q8H
     Route: 048
     Dates: start: 2000, end: 201702
  4. ACID ACETYLSALICYLIC [Concomitant]
     Indication: PERIPHERAL VENOUS DISEASE
     Dosage: 0.5 DF, QD
     Route: 048
     Dates: start: 2000

REACTIONS (3)
  - Cataract [Recovered/Resolved]
  - Blood uric acid increased [Not Recovered/Not Resolved]
  - Osteoarthritis [Recovering/Resolving]

NARRATIVE: CASE EVENT DATE: 2010
